FAERS Safety Report 10023953 (Version 1)
Quarter: 2014Q1

REPORT INFORMATION
  Report Type: Spontaneous
  Country: BR (occurrence: BR)
  Receive Date: 20140320
  Receipt Date: 20140320
  Transmission Date: 20141002
  Serious: Yes (Other)
  Sender: FDA-Public Use
  Company Number: BR-ASTELLAS-2014US002733

PATIENT
  Age: 27 Year
  Sex: Male
  Weight: 48 kg

DRUGS (2)
  1. AMBISOME [Suspect]
     Indication: PARACOCCIDIOIDES INFECTION
     Dosage: 1 G, TOTAL DOSE
     Route: 042
  2. ITRACONAZOLE [Concomitant]
     Indication: PARACOCCIDIOIDES INFECTION
     Dosage: UNK
     Route: 065

REACTIONS (2)
  - Cardiotoxicity [Unknown]
  - Nephropathy toxic [Unknown]
